FAERS Safety Report 11353906 (Version 1)
Quarter: 2015Q3

REPORT INFORMATION
  Report Type: Spontaneous
  Country: US (occurrence: US)
  Receive Date: 20150807
  Receipt Date: 20150807
  Transmission Date: 20151125
  Serious: No
  Sender: FDA-Public Use
  Company Number: US-JNJFOC-20150212573

PATIENT
  Age: 63 Year
  Sex: Female
  Weight: 72.58 kg

DRUGS (3)
  1. CYTOTEC [Concomitant]
     Active Substance: MISOPROSTOL
     Indication: GASTROINTESTINAL DISORDER THERAPY
     Route: 065
  2. VOLTAREN [Concomitant]
     Active Substance: DICLOFENAC SODIUM
     Indication: ARTHRITIS
     Route: 065
  3. CHILDRENS SUDAFED NASAL DECONGESTANT [Suspect]
     Active Substance: PSEUDOEPHEDRINE HYDROCHLORIDE
     Indication: NASOPHARYNGITIS
     Dosage: 2 TEASPOONS ABOUT AN HOUR AGO
     Route: 048
     Dates: start: 20150212

REACTIONS (2)
  - Wrong patient received medication [Unknown]
  - Drug ineffective [Unknown]
